FAERS Safety Report 7271183-3 (Version None)
Quarter: 2011Q1

REPORT INFORMATION
  Report Type: 
  Country: None (occurrence: None)
  Receive Date: 20110202
  Receipt Date: 20110128
  Transmission Date: 20110831
  Serious: No
  Sender: FDA-Public Use
  Company Number: US-PFIZER INC-2011021011

PATIENT
  Sex: Female
  Weight: 90.703 kg

DRUGS (1)
  1. ADVIL [Suspect]
     Indication: BACK PAIN
     Dosage: 200 MG, ONCE IN EVERY 6 HOURS
     Dates: end: 20110126

REACTIONS (6)
  - MALAISE [None]
  - DRUG ADMINISTRATION ERROR [None]
  - PRODUCT LABEL ISSUE [None]
  - NAUSEA [None]
  - VOMITING [None]
  - ABDOMINAL PAIN UPPER [None]
